FAERS Safety Report 15748514 (Version 1)
Quarter: 2018Q4

REPORT INFORMATION
  Report Type: Spontaneous
  Country: CN (occurrence: CN)
  Receive Date: 20181221
  Receipt Date: 20181221
  Transmission Date: 20190205
  Serious: No
  Sender: FDA-Public Use
  Company Number: CN-ALKEM LABORATORIES LIMITED-CN-ALKEM-2018-00397

PATIENT
  Age: 68 Year
  Sex: Female

DRUGS (6)
  1. RIFAMPICIN [Suspect]
     Active Substance: RIFAMPIN
     Indication: COUGH
     Dosage: UNK
     Route: 065
  2. STEROID [Concomitant]
     Active Substance: UNSPECIFIED INGREDIENT
     Indication: EOSINOPHILIC CELLULITIS
     Dosage: UNK
     Route: 048
  3. CICLOSPORIN [Concomitant]
     Active Substance: CYCLOSPORINE
     Indication: EOSINOPHILIC CELLULITIS
     Dosage: UNK
     Route: 065
  4. STEROID [Concomitant]
     Active Substance: UNSPECIFIED INGREDIENT
     Indication: NEPHROTIC SYNDROME
  5. ISONIAZID. [Suspect]
     Active Substance: ISONIAZID
     Indication: COUGH
     Dosage: UNK
     Route: 065
  6. CICLOSPORIN [Concomitant]
     Active Substance: CYCLOSPORINE
     Indication: NEPHROTIC SYNDROME

REACTIONS (1)
  - Drug ineffective [Unknown]
